FAERS Safety Report 5930003-7 (Version None)
Quarter: 2008Q4

REPORT INFORMATION
  Report Type: 
  Country: None (occurrence: None)
  Receive Date: 20081022
  Receipt Date: 20081015
  Transmission Date: 20090506
  Serious: Yes (Other)
  Sender: FDA-Public Use
  Company Number: 2008SP017233

PATIENT
  Age: 47 Year
  Sex: Male

DRUGS (3)
  1. PEG-INTRON [Suspect]
     Indication: HEPATITIS C
     Dosage: 80 MCG; QW; SC
     Route: 058
     Dates: start: 20080104
  2. RIBAVIRIN [Suspect]
     Indication: HEPATITIS C
     Dosage: 400 MG; BID; PO
     Route: 048
     Dates: start: 20080104
  3. MULTI-VITAMIN [Concomitant]

REACTIONS (7)
  - ASTHENIA [None]
  - CHEST DISCOMFORT [None]
  - CONDITION AGGRAVATED [None]
  - DYSPNOEA [None]
  - FATIGUE [None]
  - LACUNAR INFARCTION [None]
  - TEMPERATURE INTOLERANCE [None]
